FAERS Safety Report 15091472 (Version 1)
Quarter: 2018Q2

REPORT INFORMATION
  Report Type: Spontaneous
  Country: US (occurrence: US)
  Receive Date: 20180629
  Receipt Date: 20180629
  Transmission Date: 20180711
  Serious: No
  Sender: FDA-Public Use
  Company Number: US-AMGEN-USASP2016161829

PATIENT
  Age: 57 Year
  Sex: Female

DRUGS (1)
  1. PROLIA [Suspect]
     Active Substance: DENOSUMAB
     Indication: OSTEOPOROSIS POSTMENOPAUSAL
     Dosage: 60 MG, Q6MO
     Route: 058
     Dates: start: 2016

REACTIONS (8)
  - Dry throat [Unknown]
  - Lip blister [Unknown]
  - Eye disorder [Unknown]
  - Cough [Unknown]
  - Throat irritation [Unknown]
  - Sleep disorder [Unknown]
  - Pharyngeal disorder [Unknown]
  - Tinnitus [Unknown]
